FAERS Safety Report 7730487-8 (Version None)
Quarter: 2011Q3

REPORT INFORMATION
  Report Type: 
  Country: None (occurrence: None)
  Receive Date: 20110906
  Receipt Date: 20110830
  Transmission Date: 20111222
  Serious: Yes (Other)
  Sender: FDA-Public Use
  Company Number: US-ABBOTT-11P-163-0850574-00

PATIENT
  Sex: Female

DRUGS (1)
  1. LUPRON DEPOT [Suspect]
     Indication: ENDOMETRIOSIS
     Dosage: 3 MONTH FORMULATION, ONCE
     Route: 030
     Dates: start: 20110601, end: 20110601

REACTIONS (3)
  - FEMALE STERILISATION [None]
  - HYSTERECTOMY [None]
  - SURGERY [None]
